FAERS Safety Report 23220007 (Version 1)
Quarter: 2023Q4

REPORT INFORMATION
  Report Type: Spontaneous
  Country: IT (occurrence: IT)
  Receive Date: 20231122
  Receipt Date: 20231122
  Transmission Date: 20240109
  Serious: Yes (Life-Threatening, Hospitalization)
  Sender: FDA-Public Use
  Company Number: IT-STRIDES ARCOLAB LIMITED-2023SP017379

PATIENT
  Age: 26 Year
  Sex: Male

DRUGS (1)
  1. TESTOSTERONE [Suspect]
     Active Substance: TESTOSTERONE
     Indication: Hypopituitarism
     Dosage: UNK, FOR THREE YEARS
     Route: 065

REACTIONS (3)
  - Brugada syndrome [Recovered/Resolved]
  - Unmasking of previously unidentified disease [Recovered/Resolved]
  - Off label use [Unknown]
